FAERS Safety Report 8174653-9 (Version None)
Quarter: 2012Q1

REPORT INFORMATION
  Report Type: 
  Country: None (occurrence: None)
  Receive Date: 20120229
  Receipt Date: 20120221
  Transmission Date: 20120608
  Serious: Yes (Other)
  Sender: FDA-Public Use
  Company Number: US-JNJFOC-20120211473

PATIENT
  Age: 43 Year
  Sex: Female
  Weight: 71.67 kg

DRUGS (3)
  1. BENADRYL [Suspect]
     Indication: SWELLING FACE
     Route: 048
     Dates: start: 20120102, end: 20120105
  2. BACTRIM [Suspect]
     Indication: SWELLING FACE
     Route: 065
     Dates: start: 20120102, end: 20120108
  3. BENADRYL [Suspect]
     Indication: EYE SWELLING
     Route: 048
     Dates: start: 20120102, end: 20120105

REACTIONS (11)
  - NAUSEA [None]
  - MYALGIA [None]
  - ALOPECIA [None]
  - VISION BLURRED [None]
  - OFF LABEL USE [None]
  - BEDRIDDEN [None]
  - INSOMNIA [None]
  - DIARRHOEA [None]
  - VOMITING [None]
  - SYNCOPE [None]
  - MIGRAINE [None]
